FAERS Safety Report 21387876 (Version 1)
Quarter: 2022Q3

REPORT INFORMATION
  Report Type: Spontaneous
  Country: US (occurrence: None)
  Receive Date: 20220926
  Receipt Date: 20220926
  Transmission Date: 20221026
  Serious: Yes (Hospitalization)
  Sender: FDA-Public Use
  Company Number: None

PATIENT
  Sex: Male
  Weight: 76.5 kg

DRUGS (12)
  1. CAPECITABINE [Suspect]
     Active Substance: CAPECITABINE
     Indication: Colon cancer
     Dosage: FREQUENCY : TWICE A DAY;?
     Route: 048
  2. CAPECITABINE [Suspect]
     Active Substance: CAPECITABINE
  3. PROCHLORPERAZINE MALEATE [Concomitant]
  4. FOLIC ACID [Concomitant]
  5. LOSARTAN POTASSIUM [Concomitant]
  6. MAGNESIUM OXIDE [Concomitant]
  7. METOPROLOL TARTRATE [Concomitant]
  8. ONDANSETRON HCL [Concomitant]
  9. VITAMIN D3 [Concomitant]
     Active Substance: CHOLECALCIFEROL
  10. VITAMIN B12 [Concomitant]
  11. ATORVASTATIN CALCIUM [Concomitant]
  12. CLOPIDOGREL BISULFATE [Concomitant]

REACTIONS (1)
  - Adverse drug reaction [None]
